FAERS Safety Report 5721735-4 (Version None)
Quarter: 2008Q2

REPORT INFORMATION
  Report Type: 
  Country: None (occurrence: None)
  Receive Date: 20080429
  Receipt Date: 20070412
  Transmission Date: 20081010
  Serious: No
  Sender: FDA-Public Use
  Company Number: US-ASTRAZENECA-2007UW07213

PATIENT
  Sex: Female

DRUGS (4)
  1. NEXIUM [Suspect]
     Route: 048
  2. LORAZEPAM [Concomitant]
  3. ATENOLOL [Concomitant]
  4. LOVASTATIN [Concomitant]

REACTIONS (2)
  - MUSCLE SPASMS [None]
  - SENSATION OF FOREIGN BODY [None]
